FAERS Safety Report 7386165-0 (Version None)
Quarter: 2011Q1

REPORT INFORMATION
  Report Type: 
  Country: None (occurrence: None)
  Receive Date: 20110323
  Receipt Date: 20110318
  Transmission Date: 20110831
  Serious: Yes (Life-Threatening)
  Sender: FDA-Public Use
  Company Number: 2011SP012371

PATIENT
  Age: 52 Year
  Sex: Female

DRUGS (7)
  1. ULTIVA [Suspect]
     Indication: PRODUCT USED FOR UNKNOWN INDICATION
     Dosage: 40 MG, ONCE, IV
     Route: 042
     Dates: start: 20110214, end: 20110214
  2. CONTRAMAL (TRAMADOL HYDROCHLORIDE) [Suspect]
     Indication: PRODUCT USED FOR UNKNOWN INDICATION
     Dates: start: 20110214, end: 20110214
  3. CEFAMANDOL [Concomitant]
  4. DROPERIDOL [Concomitant]
  5. HEPARIN [Concomitant]
  6. PROPOFOL [Suspect]
     Indication: PRODUCT USED FOR UNKNOWN INDICATION
     Dosage: IV
     Route: 042
     Dates: start: 20110214, end: 20110214
  7. ESMERON (ROCURONIUM BROMIDE /01245702/) [Suspect]
     Indication: PRODUCT USED FOR UNKNOWN INDICATION
     Dosage: 40 MG, ONCE, IV
     Route: 042
     Dates: start: 20110214, end: 20110214

REACTIONS (3)
  - HYPOXIA [None]
  - ATRIAL FIBRILLATION [None]
  - COMA [None]
